FAERS Safety Report 7645157-4 (Version None)
Quarter: 2011Q3

REPORT INFORMATION
  Report Type: 
  Country: None (occurrence: None)
  Receive Date: 20110725
  Receipt Date: 20110711
  Transmission Date: 20111222
  Serious: Yes (Hospitalization)
  Sender: FDA-Public Use
  Company Number: 2010SP002288

PATIENT
  Age: 50 Year
  Sex: Female

DRUGS (7)
  1. TAMIFLU [Concomitant]
  2. LOVAZA [Concomitant]
  3. GABAPENTIN [Concomitant]
  4. PREMARIN [Concomitant]
  5. ASPIRIN [Concomitant]
  6. CICLESONIDE [Suspect]
     Indication: RHINITIS PERENNIAL
     Dosage: 160 UG, QD, INHALATION;
     Route: 055
     Dates: start: 20100420
  7. IBUPROFEN [Concomitant]

REACTIONS (3)
  - BLOOD CHLORIDE INCREASED [None]
  - BLOOD CREATINE PHOSPHOKINASE INCREASED [None]
  - CHEST PAIN [None]
